FAERS Safety Report 10744116 (Version 2)
Quarter: 2015Q1

REPORT INFORMATION
  Report Type: Spontaneous
  Country: IE (occurrence: IE)
  Receive Date: 20150128
  Receipt Date: 20150318
  Transmission Date: 20150721
  Serious: Yes (Death)
  Sender: FDA-Public Use
  Company Number: PHFR2015IE000967

PATIENT
  Age: 62 Year
  Sex: Male

DRUGS (1)
  1. CLOZARIL [Suspect]
     Active Substance: CLOZAPINE
     Indication: SCHIZOPHRENIA
     Dosage: UNK
     Route: 048
     Dates: start: 20020524

REACTIONS (3)
  - Tachycardia [Unknown]
  - Antipsychotic drug level decreased [Unknown]
  - Death [Fatal]

NARRATIVE: CASE EVENT DATE: 2012
